FAERS Safety Report 25371477 (Version 2)
Quarter: 2025Q2

REPORT INFORMATION
  Report Type: Spontaneous
  Country: CA (occurrence: CA)
  Receive Date: 20250529
  Receipt Date: 20250605
  Transmission Date: 20250716
  Serious: Yes (Other)
  Sender: TEVA
  Company Number: CA-TEVA-VS-3334048

PATIENT
  Age: 51 Year
  Sex: Male

DRUGS (2)
  1. PRAMIPEXOLE [Suspect]
     Active Substance: PRAMIPEXOLE
     Indication: Parkinson^s disease
     Route: 065
  2. ROTIGOTINE [Suspect]
     Active Substance: ROTIGOTINE
     Indication: Parkinson^s disease
     Route: 065

REACTIONS (2)
  - Malaise [Unknown]
  - Balance disorder [Unknown]
